FAERS Safety Report 15314588 (Version 4)
Quarter: 2018Q4

REPORT INFORMATION
  Report Type: Spontaneous
  Country: UY (occurrence: UY)
  Receive Date: 20180824
  Receipt Date: 20181121
  Transmission Date: 20190204
  Serious: Yes (Other)
  Sender: FDA-Public Use
  Company Number: UY-ROCHE-2174713

PATIENT
  Age: 51 Year
  Sex: Male

DRUGS (5)
  1. FLUCONAZOLE. [Interacting]
     Active Substance: FLUCONAZOLE
     Dosage: 1 DOSE PER WEEK
     Route: 065
  2. FLUCONAZOLE. [Interacting]
     Active Substance: FLUCONAZOLE
     Dosage: 1 DOSE PER WEEK
     Route: 065
     Dates: start: 201811
  3. RIVOTRIL [Interacting]
     Active Substance: CLONAZEPAM
     Indication: TINNITUS
  4. FLUCONAZOLE. [Interacting]
     Active Substance: FLUCONAZOLE
     Indication: FUNGAL SKIN INFECTION
     Route: 065
     Dates: start: 201806, end: 201809
  5. RIVOTRIL [Suspect]
     Active Substance: CLONAZEPAM
     Indication: INSOMNIA
     Dosage: HALF OF THE TABLET EVERY NIGHT
     Route: 048
     Dates: start: 1998

REACTIONS (4)
  - Cataract [Unknown]
  - Ocular discomfort [Not Recovered/Not Resolved]
  - Drug interaction [Unknown]
  - Visual impairment [Not Recovered/Not Resolved]
